FAERS Safety Report 14694784 (Version 1)
Quarter: 2018Q1

REPORT INFORMATION
  Report Type: Spontaneous
  Country: JP (occurrence: JP)
  Receive Date: 20180329
  Receipt Date: 20180329
  Transmission Date: 20180509
  Serious: Yes (Death, Hospitalization)
  Sender: FDA-Public Use
  Company Number: JP-BIOCRYST PHARMACEUTICALS, INC.-2018BCR00160

PATIENT
  Age: 87 Year
  Sex: Male

DRUGS (15)
  1. LASIX [Concomitant]
     Active Substance: FUROSEMIDE
  2. BISOPROLOL [Concomitant]
     Active Substance: BISOPROLOL
  3. EDIROL [Concomitant]
     Active Substance: ELDECALCITOL
  4. FLIVAS [Concomitant]
     Active Substance: NAFTOPIDIL
  5. NEXIUM [Concomitant]
     Active Substance: ESOMEPRAZOLE MAGNESIUM
  6. PROSTAL [Concomitant]
     Active Substance: CHLORMADINONE ACETATE
  7. TRANSAMIN [Concomitant]
     Active Substance: TRANEXAMIC ACID
  8. ELIQUIS [Concomitant]
     Active Substance: APIXABAN
  9. LEVOFLOXACIN OD [Suspect]
     Active Substance: LEVOFLOXACIN
     Indication: URINARY TRACT INFECTION
     Dosage: 500 MG, UNK
     Route: 048
     Dates: start: 20180110, end: 20180110
  10. LEVOFLOXACIN OD [Suspect]
     Active Substance: LEVOFLOXACIN
     Dosage: 250 MG, UNK
     Route: 048
     Dates: start: 20180111, end: 20180111
  11. SAMSCA [Concomitant]
     Active Substance: TOLVAPTAN
  12. MUCODYNE [Concomitant]
     Active Substance: CARBOCYSTEINE
  13. TRYPTANOL [Concomitant]
     Active Substance: AMITRIPTYLINE
  14. URITOS [Concomitant]
     Active Substance: IMIDAFENACIN
  15. RAPIACTA [Suspect]
     Active Substance: PERAMIVIR
     Indication: INFLUENZA
     Dosage: 100 MG, UNK
     Route: 042
     Dates: start: 20180112, end: 20180112

REACTIONS (2)
  - Stevens-Johnson syndrome [Fatal]
  - Toxic epidermal necrolysis [Fatal]

NARRATIVE: CASE EVENT DATE: 20180114
